FAERS Safety Report 5276044-7 (Version None)
Quarter: 2007Q1

REPORT INFORMATION
  Report Type: 
  Country: None (occurrence: None)
  Receive Date: 20061213
  Receipt Date: 20050922
  Transmission Date: 20070707
  Serious: Yes (Disabling)
  Sender: FDA-Public Use
  Company Number: 2005UW14324

PATIENT
  Sex: Male

DRUGS (2)
  1. SEROQUEL [Suspect]
     Dates: start: 20020101, end: 20040101
  2. RISPERDAL [Suspect]
     Dates: start: 20020101, end: 20040701

REACTIONS (1)
  - PANCREATITIS [None]
